FAERS Safety Report 16200720 (Version 1)
Quarter: 2019Q2

REPORT INFORMATION
  Report Type: Spontaneous
  Country: US (occurrence: US)
  Receive Date: 20190416
  Receipt Date: 20190416
  Transmission Date: 20190711
  Serious: No
  Sender: FDA-Public Use
  Company Number: US-009507513-1904USA005551

PATIENT
  Sex: Female
  Weight: 119.29 kg

DRUGS (2)
  1. COREG [Suspect]
     Active Substance: CARVEDILOL
     Dosage: UNK
  2. COZAAR [Suspect]
     Active Substance: LOSARTAN POTASSIUM
     Indication: HYPERTENSION
     Dosage: 75 MILLIGRAM, ONCE A DAY

REACTIONS (2)
  - Hypotension [Recovered/Resolved]
  - Heart rate increased [Recovered/Resolved]
